FAERS Safety Report 8611114-4 (Version None)
Quarter: 2012Q3

REPORT INFORMATION
  Report Type: 
  Country: None (occurrence: None)
  Receive Date: 20120808
  Receipt Date: 20120724
  Transmission Date: 20120928
  Serious: Yes (Hospitalization)
  Sender: FDA-Public Use
  Company Number: 2012SGN00273

PATIENT
  Age: 70 Year
  Sex: Male

DRUGS (13)
  1. CYCLOPHOSPHAMIDE [Concomitant]
  2. LOPID [Concomitant]
  3. VINCRISTINE [Concomitant]
  4. SEREVENT [Concomitant]
  5. SINGULAIR [Concomitant]
  6. FISH OIL [Concomitant]
  7. VITAMIN TAB [Concomitant]
  8. ADCETRIS [Suspect]
     Indication: ANAPLASTIC LARGE CELL LYMPHOMA T- AND NULL-CELL TYPES
     Dosage: 153 MG, Q21D, INTRAVENOUS
     Route: 042
     Dates: start: 20120315, end: 20120621
  9. VITAMIN D [Concomitant]
  10. ZOFRAN [Concomitant]
  11. PREDNISOLONE ACETATE [Concomitant]
  12. DOXORUBICIN HYDROCHLORIDE [Concomitant]
  13. TRIAMCINOLONE (TRIAMCINOLONE ACETONIDE) [Concomitant]

REACTIONS (9)
  - BLOOD ALKALINE PHOSPHATASE INCREASED [None]
  - HYPERGLYCAEMIA [None]
  - ANAEMIA [None]
  - GASTROINTESTINAL HAEMORRHAGE [None]
  - ASPARTATE AMINOTRANSFERASE INCREASED [None]
  - BLOOD TRIGLYCERIDES INCREASED [None]
  - ALANINE AMINOTRANSFERASE INCREASED [None]
  - DIZZINESS [None]
  - HAEMODILUTION [None]
